FAERS Safety Report 5659049-3 (Version None)
Quarter: 2008Q1

REPORT INFORMATION
  Report Type: 
  Country: None (occurrence: None)
  Receive Date: 20080310
  Receipt Date: 20071030
  Transmission Date: 20080703
  Serious: No
  Sender: FDA-Public Use
  Company Number: US-BAYER-200713550BCC

PATIENT
  Age: 45 Year
  Sex: Male
  Weight: 84 kg

DRUGS (1)
  1. ALEVE (CAPLET) [Suspect]
     Indication: DRUG USE FOR UNKNOWN INDICATION
     Dosage: TOTAL DAILY DOSE: 220 MG  UNIT DOSE: 220 MG
     Route: 048
     Dates: start: 20071030

REACTIONS (4)
  - FLUSHING [None]
  - GENERALISED ERYTHEMA [None]
  - HYPERSENSITIVITY [None]
  - PRURITUS GENERALISED [None]
